FAERS Safety Report 12467322 (Version 4)
Quarter: 2018Q3

REPORT INFORMATION
  Report Type: Spontaneous
  Country: US (occurrence: US)
  Receive Date: 20160615
  Receipt Date: 20180814
  Transmission Date: 20181010
  Serious: No
  Sender: FDA-Public Use
  Company Number: US-PFIZER INC-2015269525

PATIENT
  Age: 51 Year
  Sex: Female
  Weight: 125 kg

DRUGS (87)
  1. FLURBIPROFEN. [Concomitant]
     Active Substance: FLURBIPROFEN
     Indication: PAIN
     Dosage: UNK
     Route: 061
  2. VITAMIN D3 [Concomitant]
     Active Substance: CHOLECALCIFEROL
     Dosage: 5000 IU, DAILY
     Route: 048
  3. FLONASE [Concomitant]
     Active Substance: FLUTICASONE PROPIONATE
     Dosage: 2 SPRAYS INTO EACH NOSTRIL DAILY
     Route: 045
  4. PLAQUENIL [Concomitant]
     Active Substance: HYDROXYCHLOROQUINE SULFATE
     Dosage: 200 MG, 2X/DAY
     Route: 048
  5. NIZORAL [Concomitant]
     Active Substance: KETOCONAZOLE
     Dosage: THREE TIMES A WEEK
     Route: 061
  6. MEVACOR [Concomitant]
     Active Substance: LOVASTATIN
     Dosage: 40 MG, DAILY (AT BEDTIME)
     Route: 048
  7. CORGARD [Concomitant]
     Active Substance: NADOLOL
     Dosage: 20 MG, 2X/DAY
     Route: 048
  8. LOVAZA [Concomitant]
     Active Substance: OMEGA-3-ACID ETHYL ESTERS
     Dosage: 1 G, 2 TWICE DAILY
     Route: 048
  9. DELTASONE [Concomitant]
     Active Substance: PREDNISONE
     Dosage: 10 MG, DAILY (WITH BREAKFAST)
     Route: 048
  10. ZOMIG [Concomitant]
     Active Substance: ZOLMITRIPTAN
     Indication: HEADACHE
     Dosage: 1 SPRAY IN EACH NOSTRIL, BID PRN
     Route: 045
  11. EPLERENONE. [Concomitant]
     Active Substance: EPLERENONE
     Dosage: 50 MG, 1X/DAY
  12. HYDROXYZINE HCL [Concomitant]
     Active Substance: HYDROXYZINE HYDROCHLORIDE
     Indication: NAUSEA
     Dosage: 25 MG, FOUR TIMES DAILY AS NEEDED
     Route: 048
  13. SULFASALAZINE. [Concomitant]
     Active Substance: SULFASALAZINE
     Dosage: 1500 MG, 2X/DAY
  14. VITAMIN D3 [Suspect]
     Active Substance: CHOLECALCIFEROL
     Dosage: 1 DF, DAILY
     Route: 048
  15. INSPRA [Concomitant]
     Active Substance: EPLERENONE
     Dosage: 50 MG, DAILY (2 TABLETS)
     Route: 048
  16. ANTIVERT [Concomitant]
     Active Substance: MECLIZINE HYDROCHLORIDE
     Dosage: 25 MG, 3 TIMES DAILY AS NEEDED
     Route: 048
  17. ZOLOFT [Concomitant]
     Active Substance: SERTRALINE HYDROCHLORIDE
     Dosage: 150 MG, DAILY
  18. PROVENTIL HFA [Concomitant]
     Active Substance: ALBUTEROL SULFATE
     Indication: WHEEZING
     Dosage: 108 (90 BASE) MCG/ACT, 2 PUFFS BY MOUTH EVERY HOURS AS NEEDED
     Route: 055
  19. ROBITUSSIN DM [Concomitant]
     Active Substance: DEXTROMETHORPHAN HYDROBROMIDE\GUAIFENESIN
     Dosage: 5 ML, EVERY TWELVE HOURS [DEXTROMETHORPHAN: 10MG/5ML]/ [GUAIFENESIN: 100MG/5ML]
     Route: 048
  20. FERGON [Concomitant]
     Active Substance: FERROUS GLUCONATE
     Dosage: 324 MG, DAILY (WITH BREAKFAST)
     Route: 048
  21. METFORMIN HCL [Concomitant]
     Active Substance: METFORMIN HYDROCHLORIDE
     Dosage: 1000 MG, DAILY (2 TABLETS ONCE DAILY WITH THE EVENING MEAL.)
  22. RIZATRIPTAN BENZOATE. [Concomitant]
     Active Substance: RIZATRIPTAN BENZOATE
     Indication: HEADACHE
     Dosage: 10 MG, BID PRN
     Route: 060
  23. NARATRIPTAN HCL [Concomitant]
     Active Substance: NARATRIPTAN HYDROCHLORIDE
     Indication: HEADACHE
     Dosage: 2.5 MG, BID PRN
     Route: 048
  24. GEMFIBROZIL. [Concomitant]
     Active Substance: GEMFIBROZIL
     Dosage: 600 MG, 2X/DAY
     Route: 048
  25. MEDROXYPROGESTERONE ACETATE. [Concomitant]
     Active Substance: MEDROXYPROGESTERONE ACETATE
     Dosage: 10 MG, 1X/DAY
  26. PRIMIDONE. [Concomitant]
     Active Substance: PRIMIDONE
     Dosage: 100 MG, AT BEDTIME
  27. LYRICA [Suspect]
     Active Substance: PREGABALIN
     Indication: PAIN
     Dosage: 75MG 2 CAPSULES ONCE A DAY
     Route: 048
  28. DETROL LA [Concomitant]
     Active Substance: TOLTERODINE TARTRATE
     Dosage: 4 MG, DAILY
     Route: 048
  29. SYNTHROID [Concomitant]
     Active Substance: LEVOTHYROXINE SODIUM
     Dosage: 150 ?G, EVERY OTHER DAY
     Route: 048
  30. SYNTHROID [Concomitant]
     Active Substance: LEVOTHYROXINE SODIUM
     Dosage: 175 UG, 1X/DAY
     Route: 048
  31. MELATONIN [Concomitant]
     Active Substance: MELATONIN
     Dosage: 10 MG, DAILY (AT BEDTIME)
     Route: 048
  32. PERCOCET [Concomitant]
     Active Substance: ACETAMINOPHEN\OXYCODONE HYDROCHLORIDE
     Indication: PAIN
     Dosage: 1 DF, EVERY FOUR HOURS AS NEEDED [OXYCODONE: 5MG]/ [ACETAMINOPHEN: 325MG]
     Route: 048
  33. FAMOTIDINE. [Concomitant]
     Active Substance: FAMOTIDINE
     Dosage: 40 MG, 2X/DAY
     Route: 048
  34. FERROUS GLUCONATE [Concomitant]
     Active Substance: FERROUS GLUCONATE
     Dosage: 324 MG, DAILY
     Route: 048
  35. PREDNISONE. [Concomitant]
     Active Substance: PREDNISONE
     Dosage: 10 MG, DAILY
     Route: 048
  36. PROCHLORPERAZINE MALEATE. [Concomitant]
     Active Substance: PROCHLORPERAZINE MALEATE
     Indication: NAUSEA
     Dosage: 10 MG, EVERY 6 HOURS AS NEEDED
  37. PROVIGIL [Concomitant]
     Active Substance: MODAFINIL
     Dosage: 200 MG, DAILY
     Route: 048
  38. SERTRALINE HCL [Concomitant]
     Active Substance: SERTRALINE HYDROCHLORIDE
     Dosage: 150 MG, DAILY
     Route: 048
  39. LYRICA [Suspect]
     Active Substance: PREGABALIN
     Indication: CARPAL TUNNEL SYNDROME
     Dosage: 300 MG, 1X/DAY (4 CAPSULE ONCE AT NIGHT 90 DAYS)
     Route: 048
  40. PROVERA [Concomitant]
     Active Substance: MEDROXYPROGESTERONE ACETATE
     Dosage: 10 MG, DAILY
     Route: 048
  41. RESTASIS [Concomitant]
     Active Substance: CYCLOSPORINE
     Dosage: 1 DROP IN EACH EYE  2 TIMES DAILY
     Route: 047
  42. MYSOLINE [Concomitant]
     Active Substance: PRIMIDONE
     Dosage: 50 MG, 4X/DAY
     Route: 048
  43. CALCIUM+ D3 [Concomitant]
     Dosage: 1 DF, 3X/DAY [CALCIUM ?600 MG]/ [CARBONATE COLECALCIFEROL?200 MG]
     Route: 048
  44. ATORVASTATIN [Concomitant]
     Active Substance: ATORVASTATIN
     Dosage: 40 MG, 1X/DAY
  45. MECLIZINE HCL [Concomitant]
     Active Substance: MECLIZINE HYDROCHLORIDE
     Dosage: 25 MG, THREE TIMES DAILY AS NEEDED
     Route: 048
  46. CYCLOSPORINE. [Concomitant]
     Active Substance: CYCLOSPORINE
     Dosage: 2 GTT, 2X/DAY
  47. TOLTERODINE TARTRATE. [Concomitant]
     Active Substance: TOLTERODINE TARTRATE
     Dosage: 4 MG, DAILY
     Route: 048
  48. LYRICA [Suspect]
     Active Substance: PREGABALIN
     Indication: NECK PAIN
     Dosage: 75MG, 1 CAPSULE TWICE A DAY
     Route: 048
  49. AZULFIDINE [Concomitant]
     Active Substance: SULFASALAZINE
     Dosage: 500 MG, 3X/DAY
     Route: 048
  50. TIZANIDINE. [Concomitant]
     Active Substance: TIZANIDINE
     Dosage: 4MG 1?3 MG AT BEDTIME
  51. KETAMINE [Concomitant]
     Active Substance: KETAMINE
     Indication: PAIN
     Dosage: UNK
     Route: 061
  52. PULMICORT TURBUHALER [Concomitant]
     Active Substance: BUDESONIDE
     Dosage: 180 MCG/ACT, 1 PUFF 2 TIMES DAILY
     Route: 055
  53. SIMPONI ARIA [Concomitant]
     Active Substance: GOLIMUMAB
     Dosage: 50MG/4ML INTO THE VEIN EVERY 8 WEEKS
     Route: 042
  54. LAMICTAL [Concomitant]
     Active Substance: LAMOTRIGINE
     Dosage: 100 MG, 1/2 TAB DAILY
  55. PROVIGIL [Concomitant]
     Active Substance: MODAFINIL
     Dosage: 200 MG, DAILY
     Route: 048
  56. CARAFATE [Concomitant]
     Active Substance: SUCRALFATE
     Dosage: 1 G, 4X/DAY
     Route: 048
  57. SUCRALFATE. [Concomitant]
     Active Substance: SUCRALFATE
     Dosage: 1 G, 3X/DAY
  58. LYRICA [Suspect]
     Active Substance: PREGABALIN
     Indication: SPINAL OSTEOARTHRITIS
     Dosage: 225 MG, 1X/DAY (75MG, 3 CAPSULE ONCE AT NIGHT)
     Route: 048
  59. LYRICA [Suspect]
     Active Substance: PREGABALIN
     Indication: RADICULOPATHY
     Dosage: 1?4 CAPS, AS NEEDED
     Route: 048
  60. LOPID [Concomitant]
     Active Substance: GEMFIBROZIL
     Dosage: 600 MG, 2X/DAY (BEFORE MEALS)
     Route: 048
  61. AZULFIDINE [Concomitant]
     Active Substance: SULFASALAZINE
     Dosage: 1500 MG, 2X/DAY
     Route: 048
  62. ACTEMRA [Concomitant]
     Active Substance: TOCILIZUMAB
     Dosage: 800 MG, EVERY 4 WEEKS
     Route: 042
  63. MIGRANAL [Concomitant]
     Active Substance: DIHYDROERGOTAMINE MESYLATE
     Indication: MIGRAINE
     Dosage: 1 SPRAY INTO EACH NOSTRIL AS NEEDED
     Route: 045
  64. ZESTRIL [Concomitant]
     Active Substance: LISINOPRIL
     Dosage: 10 MG, DAILY
     Route: 048
  65. MELATONIN [Concomitant]
     Active Substance: MELATONIN
     Dosage: 5 MG, 2 TABS, AS NEEDED
     Route: 048
  66. LEVOTHYROXINE SODIUM. [Concomitant]
     Active Substance: LEVOTHYROXINE SODIUM
     Dosage: 200 UG, DAILY
     Route: 048
  67. HYDROXYCHLOROQUINE SULFATE. [Concomitant]
     Active Substance: HYDROXYCHLOROQUINE SULFATE
     Dosage: 200 MG, 2X/DAY
     Route: 048
  68. TIZANIDINE HCL [Concomitant]
     Active Substance: TIZANIDINE HYDROCHLORIDE
     Dosage: 4 MG, AT BEDTIME
     Route: 048
  69. PRINIVIL [Concomitant]
     Active Substance: LISINOPRIL
     Dosage: 10 MG, DAILY
     Route: 048
  70. GLUCOPHATE?XR [Concomitant]
     Dosage: 1000 MG, DAILY
     Route: 048
  71. COMPAZINE [Concomitant]
     Active Substance: PROCHLORPERAZINE MALEATE
     Indication: NAUSEA
     Dosage: 10 MG, EVERY SIX HOUR AS NEEDED
     Route: 048
  72. HYDROXYZINE HCL [Concomitant]
     Active Substance: HYDROXYZINE HYDROCHLORIDE
     Indication: VOMITING
  73. LISINOPRIL. [Concomitant]
     Active Substance: LISINOPRIL
     Dosage: 10 MG, DAILY
     Route: 048
  74. OXYCODONE?ACETAMINOPHEN [Concomitant]
     Active Substance: ACETAMINOPHEN\OXYCODONE HYDROCHLORIDE
     Indication: PAIN
     Dosage: 1?2 EVERY 6 HOURS AS NEEDED [OXYCODONE: 5 MG]/[ACETAMINOPHEN: 325 MG]
  75. PULMICORT TURBUHALER [Concomitant]
     Active Substance: BUDESONIDE
     Dosage: 1 DF, 2X/DAY
  76. CYCLOBENZAPRINE. [Concomitant]
     Active Substance: CYCLOBENZAPRINE
     Indication: PAIN
     Dosage: UNK
     Route: 061
  77. VENTOLIN HFA [Concomitant]
     Active Substance: ALBUTEROL SULFATE
     Indication: WHEEZING
     Dosage: 108 (90 BASE) MCG/ACT, 2 PUFFS BY MOUTH EVERY HOURS AS NEEDED
     Route: 055
  78. CALCIUM CARBONATE?VITAMIN D [Concomitant]
     Active Substance: CALCIUM CARBONATE\VITAMIN D
     Dosage: 1 DF (600?200 MG DOSE), DAILY [CALCIUM CARBONATE: 1500MG] / [VITAMIN D: 400MG]
     Route: 048
  79. ATARAX [Concomitant]
     Active Substance: HYDROXYZINE HYDROCHLORIDE
     Indication: PRURITUS
     Dosage: 25 MG, 3 TIMES DAILY AS NEEDED
     Route: 048
  80. SYNTHROID [Concomitant]
     Active Substance: LEVOTHYROXINE SODIUM
     Dosage: 175 UG, ALTERNATE DAY
     Route: 048
  81. COMPAZINE [Concomitant]
     Active Substance: PROCHLORPERAZINE MALEATE
     Indication: VOMITING
  82. ZOMIG [Concomitant]
     Active Substance: ZOLMITRIPTAN
     Indication: MIGRAINE
     Dosage: 5 MG, AS NEEDED (MAY REPEAT ONCE AFTER 2 HOURS MAX 10MG/DAY)
     Route: 048
  83. PROAIR HFA [Concomitant]
     Active Substance: ALBUTEROL SULFATE
     Dosage: 108 (90 BASE) MCG/ACT, EVERY 4 HOURS AS NEEDED
  84. FLUTICASONE PROPIONATE. [Concomitant]
     Active Substance: FLUTICASONE PROPIONATE
     Dosage: 2 SPRAYS IN EACH NOSTRILS
     Route: 045
  85. NADOLOL. [Concomitant]
     Active Substance: NADOLOL
     Dosage: 20 MG, 2X/DAY
     Route: 048
  86. KETOCONAZOLE. [Concomitant]
     Active Substance: KETOCONAZOLE
     Indication: RASH
     Dosage: USE TWICE DAILY AS NEEDED
  87. KETOCONAZOLE. [Concomitant]
     Active Substance: KETOCONAZOLE
     Dosage: 2?3 DAYS PER WEEK

REACTIONS (2)
  - Body mass index increased [Unknown]
  - Product use issue [Unknown]

NARRATIVE: CASE EVENT DATE: 20160128
